FAERS Safety Report 25141230 (Version 1)
Quarter: 2025Q1

REPORT INFORMATION
  Report Type: Spontaneous
  Country: FR (occurrence: FR)
  Receive Date: 20250331
  Receipt Date: 20250331
  Transmission Date: 20250409
  Serious: Yes (Other)
  Sender: PFIZER
  Company Number: None

PATIENT
  Age: 65 Year
  Sex: Male

DRUGS (3)
  1. RITUXIMAB [Suspect]
     Active Substance: RITUXIMAB
     Indication: Anti-myelin-associated glycoprotein associated polyneuropathy
     Route: 042
     Dates: start: 20250220, end: 20250306
  2. FLEBOGAMMA DIF [Suspect]
     Active Substance: HUMAN IMMUNOGLOBULIN G
     Indication: Anti-myelin-associated glycoprotein associated polyneuropathy
     Dosage: 2 G/KG 1X/DAY
     Route: 042
     Dates: start: 20250218, end: 20250222
  3. NEURONTIN [Suspect]
     Active Substance: GABAPENTIN
     Indication: Anti-myelin-associated glycoprotein associated polyneuropathy
     Route: 048
     Dates: start: 20250220

REACTIONS (2)
  - Rash maculo-papular [Not Recovered/Not Resolved]
  - Off label use [Unknown]

NARRATIVE: CASE EVENT DATE: 20250220
